FAERS Safety Report 5752977-X (Version None)
Quarter: 2008Q2

REPORT INFORMATION
  Report Type: 
  Country: None (occurrence: None)
  Receive Date: 20080527
  Receipt Date: 20080509
  Transmission Date: 20081010
  Serious: Yes (Death, Life-Threatening, Hospitalization)
  Sender: FDA-Public Use
  Company Number: BE-JNJFOC-20070103707

PATIENT
  Age: 80 Year
  Sex: Female
  Weight: 56 kg

DRUGS (3)
  1. DECITABINE (DECITABINE) LYOPHILIZED POWDER [Suspect]
     Indication: MYELODYSPLASTIC SYNDROME
     Dosage: 135 MG/M2, 1 IN 6 WEEK, INTRAVENOUS
     Route: 042
     Dates: start: 20061205, end: 20061207
  2. MEDROL (METHYLPREDNISOLONE) UNSPECIFIED [Concomitant]
  3. ZURCALE (PANTOPRAZOLE SODIUM) UNSPECIFIED [Concomitant]

REACTIONS (7)
  - ACUTE RESPIRATORY DISTRESS SYNDROME [None]
  - ANOREXIA [None]
  - BRONCHOPNEUMONIA [None]
  - CLOSTRIDIUM DIFFICILE SEPSIS [None]
  - RESPIRATORY FAILURE [None]
  - STAPHYLOCOCCAL INFECTION [None]
  - STAPHYLOCOCCAL SEPSIS [None]
